FAERS Safety Report 7546865-6 (Version None)
Quarter: 2011Q2

REPORT INFORMATION
  Report Type: 
  Country: None (occurrence: None)
  Receive Date: 20110607
  Receipt Date: 20110523
  Transmission Date: 20111010
  Serious: Yes (Hospitalization)
  Sender: FDA-Public Use
  Company Number: 2011MA006331

PATIENT
  Age: 74 Year
  Sex: Female

DRUGS (4)
  1. PROPOFOL [Concomitant]
  2. SUFENTANYL [Concomitant]
  3. MIDAZOLAM HCL [Concomitant]
  4. HALOPERIDOL LACTATE [Suspect]
     Indication: ANAESTHESIA
     Dosage: 0.5 MG; IV
     Route: 042

REACTIONS (8)
  - TACHYCARDIA [None]
  - SUBCUTANEOUS HAEMATOMA [None]
  - INSOMNIA [None]
  - PARAESTHESIA [None]
  - RESTLESS LEGS SYNDROME [None]
  - INCISION SITE HAEMATOMA [None]
  - CONDITION AGGRAVATED [None]
  - SYSTOLIC HYPERTENSION [None]
